FAERS Safety Report 6073730-6 (Version None)
Quarter: 2009Q1

REPORT INFORMATION
  Report Type: 
  Country: None (occurrence: None)
  Receive Date: 20090211
  Receipt Date: 20090205
  Transmission Date: 20090719
  Serious: Yes (Death)
  Sender: FDA-Public Use
  Company Number: US-CELGENEUS-163-21880-09020433

PATIENT
  Sex: Female

DRUGS (4)
  1. REVLIMID [Suspect]
     Indication: MULTIPLE MYELOMA
     Route: 048
     Dates: start: 20080722
  2. REVLIMID [Suspect]
     Route: 048
     Dates: start: 20071113, end: 20071201
  3. REVLIMID [Suspect]
     Route: 048
     Dates: start: 20071207, end: 20080101
  4. REVLIMID [Suspect]
     Route: 048
     Dates: start: 20080623, end: 20080701

REACTIONS (1)
  - MULTIPLE MYELOMA [None]
